FAERS Safety Report 6369085-X (Version None)
Quarter: 2009Q3

REPORT INFORMATION
  Report Type: 
  Country: None (occurrence: None)
  Receive Date: 20090922
  Receipt Date: 20090918
  Transmission Date: 20100115
  Serious: Yes (Death, Other)
  Sender: FDA-Public Use
  Company Number: PHEH2009US10990

PATIENT
  Sex: Female

DRUGS (1)
  1. EXJADE [Suspect]
     Indication: IRON OVERLOAD
     Dosage: 1750MG, QD
     Route: 048
     Dates: start: 20090610, end: 20090803

REACTIONS (7)
  - ANAEMIA [None]
  - ATRIAL FIBRILLATION [None]
  - DEATH [None]
  - HAEMORRHAGE [None]
  - INJURY [None]
  - RENAL FAILURE [None]
  - SYNCOPE [None]
